FAERS Safety Report 4590034-9 (Version None)
Quarter: 2005Q1

REPORT INFORMATION
  Report Type: 
  Country: None (occurrence: None)
  Receive Date: 20050217
  Receipt Date: 20050203
  Transmission Date: 20050727
  Serious: No
  Sender: FDA-Public Use
  Company Number: 2005CG00297

PATIENT

DRUGS (4)
  1. XYLOCAINE [Suspect]
     Indication: LOCAL ANAESTHESIA
     Dosage: 200 MG ONCE RNB
     Dates: start: 20040101, end: 20040101
  2. XYLOCAINE [Suspect]
     Indication: LOCAL ANAESTHESIA
     Dosage: 200 MG ONCE RNB
     Dates: start: 20040101, end: 20040101
  3. NAROPIN [Suspect]
     Indication: LOCAL ANAESTHESIA
     Dosage: 75 MG ONCE RNB
     Dates: start: 20040101, end: 20040101
  4. NAROPIN [Suspect]
     Indication: LOCAL ANAESTHESIA
     Dosage: 75 MG ONCE RNB
     Dates: start: 20040101, end: 20040101

REACTIONS (3)
  - AGITATION [None]
  - ANXIETY [None]
  - CLONUS [None]
